FAERS Safety Report 9122799 (Version 1)
Quarter: 2013Q1

REPORT INFORMATION
  Report Type: Spontaneous
  Country: US (occurrence: US)
  Receive Date: 20130115
  Receipt Date: 20130115
  Transmission Date: 20140127
  Serious: Yes (Other)
  Sender: FDA-Public Use
  Company Number: US-009507513-1301USA003397

PATIENT
  Age: 49 Year
  Sex: Female

DRUGS (1)
  1. SINGULAIR [Suspect]
     Indication: RHINITIS
     Dosage: 10 MG, 1X DAY, PO
     Route: 048

REACTIONS (6)
  - Wheezing [Unknown]
  - Sinusitis [Unknown]
  - Rhinorrhoea [Unknown]
  - Lung disorder [Unknown]
  - Influenza like illness [Unknown]
  - Dyspnoea [Unknown]
